FAERS Safety Report 8046744-4 (Version None)
Quarter: 2012Q1

REPORT INFORMATION
  Report Type: 
  Country: None (occurrence: None)
  Receive Date: 20120116
  Receipt Date: 20120109
  Transmission Date: 20120608
  Serious: Yes (Hospitalization)
  Sender: FDA-Public Use
  Company Number: US-BIOGENIDEC-2012BI001002

PATIENT
  Age: 56 Year
  Sex: Female

DRUGS (2)
  1. STEROIDS (NOS) [Concomitant]
  2. AVONEX [Suspect]
     Indication: MULTIPLE SCLEROSIS
     Route: 030
     Dates: start: 19991129

REACTIONS (2)
  - ABASIA [None]
  - LARGE INTESTINE PERFORATION [None]
